FAERS Safety Report 7603157-4 (Version None)
Quarter: 2011Q3

REPORT INFORMATION
  Report Type: 
  Country: None (occurrence: None)
  Receive Date: 20110701
  Receipt Date: 20110617
  Transmission Date: 20111222
  Serious: Yes (Life-Threatening)
  Sender: FDA-Public Use
  Company Number: AUR-APL-2011-03305

PATIENT
  Age: 55 Year
  Sex: Female

DRUGS (2)
  1. METFORMIN HCL [Suspect]
     Indication: TYPE 2 DIABETES MELLITUS
     Dates: start: 20100526
  2. ONGLYZA [Suspect]
     Indication: TYPE 2 DIABETES MELLITUS
     Dosage: ORAL
     Route: 048

REACTIONS (1)
  - ACUTE LYMPHOCYTIC LEUKAEMIA [None]
